FAERS Safety Report 13823132 (Version 2)
Quarter: 2017Q3

REPORT INFORMATION
  Report Type: Spontaneous
  Country: IT (occurrence: IT)
  Receive Date: 20170801
  Receipt Date: 20170808
  Transmission Date: 20171127
  Serious: Yes (Hospitalization, Other)
  Sender: FDA-Public Use
  Company Number: IT-BRISTOL-MYERS SQUIBB COMPANY-BMS-2017-065293

PATIENT
  Sex: Female

DRUGS (5)
  1. COUMADIN [Suspect]
     Active Substance: WARFARIN SODIUM
     Indication: THROMBOSIS PROPHYLAXIS
     Dosage: 1 UNIT, DAILY
     Route: 048
     Dates: start: 20170307, end: 20170307
  2. APROVEL [Concomitant]
     Active Substance: IRBESARTAN
     Indication: PRODUCT USED FOR UNKNOWN INDICATION
     Route: 065
  3. TALOFEN [Concomitant]
     Active Substance: PROMAZINE HYDROCHLORIDE
     Indication: PRODUCT USED FOR UNKNOWN INDICATION
     Route: 065
  4. TRITTICO [Concomitant]
     Active Substance: TRAZODONE HYDROCHLORIDE
     Indication: PRODUCT USED FOR UNKNOWN INDICATION
     Route: 065
  5. CONGESCOR [Concomitant]
     Active Substance: BISOPROLOL
     Indication: PRODUCT USED FOR UNKNOWN INDICATION
     Route: 065

REACTIONS (8)
  - Anaemia [Recovering/Resolving]
  - Atrial fibrillation [Unknown]
  - Dyspnoea [Recovering/Resolving]
  - Abdominal pain [Recovering/Resolving]
  - Transfusion [Unknown]
  - Haematoma [Recovering/Resolving]
  - International normalised ratio abnormal [Recovering/Resolving]
  - Overdose [Recovering/Resolving]
